FAERS Safety Report 6234817-8 (Version None)
Quarter: 2009Q2

REPORT INFORMATION
  Report Type: 
  Country: None (occurrence: None)
  Receive Date: 20090618
  Receipt Date: 20090608
  Transmission Date: 20091009
  Serious: Yes (Hospitalization)
  Sender: FDA-Public Use
  Company Number: US-MYLANLABS-2009S1010119

PATIENT
  Age: 56 Year
  Sex: Female
  Weight: 56.7 kg

DRUGS (8)
  1. FENTANYL TRANSDERMAL SYSTEM [Suspect]
     Indication: FIBROMYALGIA
     Dosage: Q72H
     Route: 062
     Dates: start: 20080901, end: 20081212
  2. FENTANYL TRANSDERMAL SYSTEM [Suspect]
     Indication: PAIN
     Dosage: Q72H
     Route: 062
     Dates: start: 20080901, end: 20081212
  3. FENTANYL TRANSDERMAL SYSTEM [Suspect]
     Dosage: Q72H
     Route: 062
     Dates: start: 20081213, end: 20090201
  4. FENTANYL TRANSDERMAL SYSTEM [Suspect]
     Dosage: Q72H
     Route: 062
     Dates: start: 20081213, end: 20090201
  5. XANAX [Concomitant]
     Indication: ANXIETY
     Route: 048
     Dates: start: 20040101
  6. BACLOFEN [Concomitant]
     Indication: MUSCLE SPASMS
     Route: 048
     Dates: start: 20040101
  7. NAPROXEN [Concomitant]
     Indication: PAIN
     Route: 048
     Dates: start: 20040101
  8. BUTALBITAL [Concomitant]
     Indication: HEADACHE
     Route: 048
     Dates: start: 20040101

REACTIONS (7)
  - AMNESIA [None]
  - CONFUSIONAL STATE [None]
  - DYSPNOEA [None]
  - MENTAL STATUS CHANGES [None]
  - OVERDOSE [None]
  - PNEUMONIA ASPIRATION [None]
  - WEIGHT DECREASED [None]
